FAERS Safety Report 9262485 (Version 1)
Quarter: 2013Q2

REPORT INFORMATION
  Report Type: Spontaneous
  Country: SE (occurrence: SE)
  Receive Date: 20130430
  Receipt Date: 20130430
  Transmission Date: 20140414
  Serious: Yes (Other)
  Sender: FDA-Public Use
  Company Number: SE-AMGEN-SWESP2013016694

PATIENT
  Age: 65 Year
  Sex: Female

DRUGS (5)
  1. ENBREL [Suspect]
     Indication: RHEUMATOID ARTHRITIS
     Dosage: 50 MG, WEEKLY
     Dates: start: 20110606, end: 20121209
  2. ENBREL [Suspect]
     Dosage: 50 MG, WEEKLY
     Dates: start: 20130125
  3. METHOTREXATE [Concomitant]
     Dosage: 10 MG, WEEKLY, 4 TABLETS PER WEEK
  4. FOLACIN                            /00198401/ [Concomitant]
     Dosage: UNK
  5. CALCICHEW [Concomitant]
     Dosage: UNK

REACTIONS (3)
  - Pruritus generalised [Not Recovered/Not Resolved]
  - Urinary tract infection [Recovered/Resolved]
  - Eye infection [Recovered/Resolved]
